FAERS Safety Report 8914921 (Version 2)
Quarter: 2012Q4

REPORT INFORMATION
  Report Type: 
  Country: JP (occurrence: JP)
  Receive Date: 20121119
  Receipt Date: 20121210
  Transmission Date: 20130627
  Serious: Yes (Other)
  Sender: FDA-Public Use
  Company Number: JP-ELI_LILLY_AND_COMPANY-JP201211002218

PATIENT
  Age: 68 Year
  Sex: Male

DRUGS (5)
  1. ALIMTA [Suspect]
     Indication: LUNG ADENOCARCINOMA STAGE IV
     Dosage: UNK
     Route: 042
     Dates: start: 200912
  2. CISPLATIN [Concomitant]
     Indication: LUNG ADENOCARCINOMA STAGE IV
     Dosage: UNK
     Dates: start: 200912
  3. CARBOPLATIN [Concomitant]
     Indication: LUNG ADENOCARCINOMA STAGE IV
     Dosage: UNK
     Dates: start: 201001
  4. GEFITINIB [Concomitant]
     Indication: LUNG ADENOCARCINOMA STAGE IV
     Dosage: UNK
     Dates: start: 201005
  5. DOCETAXEL [Concomitant]
     Indication: LUNG ADENOCARCINOMA STAGE IV
     Dosage: UNK
     Dates: start: 201106

REACTIONS (1)
  - Leukoencephalopathy [Unknown]
